FAERS Safety Report 17146572 (Version 1)
Quarter: 2019Q4

REPORT INFORMATION
  Report Type: Spontaneous
  Country: SE (occurrence: SE)
  Receive Date: 20191212
  Receipt Date: 20191212
  Transmission Date: 20200122
  Serious: Yes (Hospitalization)
  Sender: FDA-Public Use
  Company Number: SE-TEVA-2019-SE-1149720

PATIENT
  Age: 36 Year
  Sex: Female

DRUGS (6)
  1. STESOLID [Suspect]
     Active Substance: DIAZEPAM
     Dosage: 50-75 MG
     Route: 048
     Dates: start: 20180924, end: 20180924
  2. RITALIN [Suspect]
     Active Substance: METHYLPHENIDATE HYDROCHLORIDE
     Dosage: 30-50 MG
     Route: 048
     Dates: start: 20180924, end: 20180924
  3. THERALEN [Suspect]
     Active Substance: TRIMEPRAZINE
     Dosage: 80-120 MG
     Route: 048
     Dates: start: 20180924, end: 20180924
  4. LERGIGAN (PROMETHAZINE HYDROCHLORIDE) [Suspect]
     Active Substance: PROMETHAZINE HYDROCHLORIDE
     Dosage: 250-500 MG LERGIGAN
     Route: 048
     Dates: start: 20180924, end: 20180924
  5. ZOPICLONE [Suspect]
     Active Substance: ZOPICLONE
     Dosage: 35-70MG
     Route: 048
     Dates: start: 20180924, end: 20180924
  6. ELVANSE [Suspect]
     Active Substance: LISDEXAMFETAMINE DIMESYLATE
     Dosage: 50 MG
     Route: 048
     Dates: start: 20180924, end: 20180924

REACTIONS (4)
  - Fatigue [Unknown]
  - Intentional self-injury [Unknown]
  - Hypotension [Unknown]
  - Intentional overdose [Unknown]

NARRATIVE: CASE EVENT DATE: 20180924
